FAERS Safety Report 24819618 (Version 1)
Quarter: 2025Q1

REPORT INFORMATION
  Report Type: Spontaneous
  Country: US (occurrence: US)
  Receive Date: 20250108
  Receipt Date: 20250108
  Transmission Date: 20250408
  Serious: No
  Sender: BAYER HEALTHCARE PHARMACEUTICALS INC.
  Company Number: US-BAYER-2025A000130

PATIENT
  Age: 14 Year
  Sex: Female

DRUGS (2)
  1. CLIMARA [Suspect]
     Active Substance: ESTRADIOL
     Indication: Blood oestrogen decreased
     Route: 062
     Dates: start: 2024
  2. CLIMARA [Suspect]
     Active Substance: ESTRADIOL
     Indication: Eating disorder

REACTIONS (1)
  - Solar urticaria [None]

NARRATIVE: CASE EVENT DATE: 20240101
